FAERS Safety Report 4855038-7 (Version None)
Quarter: 2005Q4

REPORT INFORMATION
  Report Type: 
  Country: None (occurrence: None)
  Receive Date: 20051214
  Receipt Date: 20051201
  Transmission Date: 20060501
  Serious: Yes (Other)
  Sender: FDA-Public Use
  Company Number: 2005163412

PATIENT
  Sex: 0

DRUGS (2)
  1. AZITHROMYCIN [Suspect]
     Indication: ILL-DEFINED DISORDER
     Dosage: (1 GRAM, ONCE)
  2. AMOXICILLIN [Concomitant]

REACTIONS (1)
  - DIARRHOEA HAEMORRHAGIC [None]
